FAERS Safety Report 12106349 (Version 3)
Quarter: 2016Q3

REPORT INFORMATION
  Report Type: Report from Study
  Country: US (occurrence: US)
  Receive Date: 20160223
  Receipt Date: 20160712
  Transmission Date: 20161109
  Serious: Yes (Death, Other)
  Sender: FDA-Public Use
  Company Number: US-GILEAD-2016-0198851

PATIENT
  Age: 0 Year
  Sex: Male

DRUGS (3)
  1. EMTRICITABINE/TENOFOVIR DISOPROXIL FUMARATE [Suspect]
     Active Substance: EMTRICITABINE\TENOFOVIR DISOPROXIL
     Indication: HIV INFECTION
     Dosage: 1 DF, QD
     Route: 064
     Dates: start: 20150731, end: 20150910
  2. ELVITEGRAVIR/EMTRICITABINE/TENOFOVIR DF/COBICISTAT [Suspect]
     Active Substance: COBICISTAT\ELVITEGRAVIR\EMTRICITABINE\TENOFOVIR
     Indication: HIV INFECTION
     Dosage: 1 DF, QD
     Route: 064
     Dates: start: 2015, end: 20150731
  3. TIVICAY [Suspect]
     Active Substance: DOLUTEGRAVIR SODIUM
     Indication: HIV INFECTION
     Dosage: 50 MG, QD
     Route: 064
     Dates: start: 20150731, end: 20150910

REACTIONS (10)
  - Metabolic acidosis [Fatal]
  - Intraventricular haemorrhage neonatal [Fatal]
  - Gastrointestinal disorder [Fatal]
  - Foetal growth restriction [Unknown]
  - Ascites [Unknown]
  - Jaundice cholestatic [Fatal]
  - Neonatal respiratory distress syndrome [Fatal]
  - Pleural effusion [Unknown]
  - Premature baby [Fatal]
  - Foetal exposure during pregnancy [Recovered/Resolved]

NARRATIVE: CASE EVENT DATE: 2015
